FAERS Safety Report 21533202 (Version 1)
Quarter: 2022Q4

REPORT INFORMATION
  Report Type: Spontaneous
  Country: VE (occurrence: VE)
  Receive Date: 20221101
  Receipt Date: 20221101
  Transmission Date: 20230113
  Serious: Yes (Other)
  Sender: FDA-Public Use
  Company Number: VE-SUN PHARMACEUTICAL INDUSTRIES LTD-2022R1-361384

PATIENT
  Age: 48 Year
  Sex: Male

DRUGS (1)
  1. DEXAMETHASONE [Suspect]
     Active Substance: DEXAMETHASONE
     Indication: COVID-19
     Dosage: 8 MILLIGRAM, DAILY
     Route: 065

REACTIONS (1)
  - Neuropsychiatric symptoms [Recovered/Resolved]
